FAERS Safety Report 20369485 (Version 3)
Quarter: 2024Q1

REPORT INFORMATION
  Report Type: Report from Study
  Country: US (occurrence: US)
  Receive Date: 20220124
  Receipt Date: 20240229
  Transmission Date: 20240410
  Serious: Yes (Other)
  Sender: FDA-Public Use
  Company Number: US-NOVARTISTESTPH-NVSC2022US014493

PATIENT
  Sex: Female

DRUGS (1)
  1. COSENTYX [Suspect]
     Active Substance: SECUKINUMAB
     Indication: Psoriasis
     Dosage: 300 MG
     Route: 058

REACTIONS (11)
  - Skin cancer [Unknown]
  - Therapeutic product ineffective [Unknown]
  - Psoriasis [Unknown]
  - Macule [Unknown]
  - Actinic keratosis [Unknown]
  - Erythema [Unknown]
  - Pruritus [Unknown]
  - Pain [Unknown]
  - Neoplasm skin [Unknown]
  - Skin papilloma [Unknown]
  - Melanocytic naevus [Unknown]
